FAERS Safety Report 7153847-5 (Version None)
Quarter: 2010Q4

REPORT INFORMATION
  Report Type: 
  Country: None (occurrence: None)
  Receive Date: 20101213
  Receipt Date: 20101011
  Transmission Date: 20110411
  Serious: No
  Sender: FDA-Public Use
  Company Number: US-ABBOTT-10P-163-0677122-00

PATIENT
  Sex: Female
  Weight: 115.77 kg

DRUGS (3)
  1. MERIDIA [Suspect]
     Indication: WEIGHT DECREASED
     Dates: end: 20101008
  2. LISINOPRIL [Concomitant]
     Indication: BLOOD PRESSURE
     Dosage: DAILY
     Route: 048
  3. KLOR-CON [Concomitant]
     Indication: PRODUCT USED FOR UNKNOWN INDICATION

REACTIONS (4)
  - HYPOAESTHESIA [None]
  - INSOMNIA [None]
  - PALPITATIONS [None]
  - PARAESTHESIA [None]
